FAERS Safety Report 21165041 (Version 2)
Quarter: 2022Q3

REPORT INFORMATION
  Report Type: Spontaneous
  Country: CA (occurrence: CA)
  Receive Date: 20220803
  Receipt Date: 20220822
  Transmission Date: 20221027
  Serious: Yes (Other)
  Sender: FDA-Public Use
  Company Number: CA-AUROBINDO-AUR-APL-2022-029356

PATIENT
  Sex: Female

DRUGS (91)
  1. AMOXICILLIN [Suspect]
     Active Substance: AMOXICILLIN
     Indication: Product used for unknown indication
     Dosage: UNK
     Route: 065
  2. ATORVASTATIN [Suspect]
     Active Substance: ATORVASTATIN
     Indication: Product used for unknown indication
     Dosage: UNK
     Route: 065
  3. AZITHROMYCIN [Suspect]
     Active Substance: AZITHROMYCIN
     Indication: Product used for unknown indication
     Dosage: UNK
     Route: 048
  4. METRONIDAZOLE [Suspect]
     Active Substance: METRONIDAZOLE
     Indication: Product used for unknown indication
     Dosage: UNK
     Route: 065
  5. PREGABALIN [Suspect]
     Active Substance: PREGABALIN
     Indication: Product used for unknown indication
     Dosage: UNK
     Route: 065
  6. SULFAMETHOXAZOLE\TRIMETHOPRIM [Suspect]
     Active Substance: SULFAMETHOXAZOLE\TRIMETHOPRIM
     Indication: Product used for unknown indication
     Dosage: UNK
     Route: 065
  7. PANTOPRAZOLE [Suspect]
     Active Substance: PANTOPRAZOLE
     Indication: Product used for unknown indication
     Dosage: UNK
     Route: 065
  8. ALPRAZOLAM [Suspect]
     Active Substance: ALPRAZOLAM
     Indication: Product used for unknown indication
     Dosage: UNK
     Route: 065
  9. ACETAMINOPHEN [Suspect]
     Active Substance: ACETAMINOPHEN
     Indication: Product used for unknown indication
     Dosage: UNK
     Route: 065
  10. ASPIRIN [Suspect]
     Active Substance: ASPIRIN
     Indication: Product used for unknown indication
     Dosage: UNK
     Route: 065
  11. ADALIMUMAB [Suspect]
     Active Substance: ADALIMUMAB
     Indication: Crohn^s disease
     Dosage: UNK
     Route: 058
  12. ALPRAZOLAM [Suspect]
     Active Substance: ALPRAZOLAM
     Indication: Product used for unknown indication
     Dosage: UNK
     Route: 065
  13. ATROPINE SULFATE [Suspect]
     Active Substance: ATROPINE SULFATE
     Indication: Product used for unknown indication
     Dosage: UNK
     Route: 065
  14. ATROPINE SULFATE\DIPHENOXYLATE HYDROCHLORIDE [Suspect]
     Active Substance: ATROPINE SULFATE\DIPHENOXYLATE HYDROCHLORIDE
     Indication: Product used for unknown indication
     Dosage: UNK
     Route: 048
  15. ATORVASTATIN [Suspect]
     Active Substance: ATORVASTATIN
     Indication: Product used for unknown indication
     Dosage: UNK
     Route: 065
  16. HYDROCHLOROTHIAZIDE [Suspect]
     Active Substance: HYDROCHLOROTHIAZIDE
     Indication: Product used for unknown indication
     Dosage: UNK
     Route: 065
  17. BACTRIM [Suspect]
     Active Substance: SULFAMETHOXAZOLE\TRIMETHOPRIM
     Indication: Product used for unknown indication
     Dosage: UNK
     Route: 065
  18. BETAMETHASONE [Suspect]
     Active Substance: BETAMETHASONE
     Indication: Product used for unknown indication
     Dosage: UNK
     Route: 065
  19. BETAMETHASONE DIPROPIONATE [Suspect]
     Active Substance: BETAMETHASONE DIPROPIONATE
     Indication: Product used for unknown indication
     Dosage: UNK
     Route: 065
  20. BETAMETHASONE VALERATE [Suspect]
     Active Substance: BETAMETHASONE VALERATE
     Indication: Product used for unknown indication
     Dosage: UNK
     Route: 065
  21. BIAXIN [Suspect]
     Active Substance: CLARITHROMYCIN
     Indication: Product used for unknown indication
     Dosage: UNK
     Route: 065
  22. BISACODYL [Suspect]
     Active Substance: BISACODYL
     Indication: Product used for unknown indication
     Dosage: UNK
     Route: 065
  23. BUDESONIDE [Suspect]
     Active Substance: BUDESONIDE
     Indication: Product used for unknown indication
     Dosage: UNK
     Route: 065
  24. CALCIUM CARBONATE [Suspect]
     Active Substance: CALCIUM CARBONATE
     Indication: Product used for unknown indication
     Dosage: UNK
     Route: 065
  25. CALCIUM CARBONATE\CHOLECALCIFEROL [Suspect]
     Active Substance: CALCIUM CARBONATE\CHOLECALCIFEROL
     Indication: Product used for unknown indication
     Dosage: UNK
     Route: 065
  26. CALCIUM CITRATE [Suspect]
     Active Substance: CALCIUM CITRATE
     Indication: Product used for unknown indication
     Dosage: UNK
     Route: 065
  27. CETIRIZINE [Suspect]
     Active Substance: CETIRIZINE HYDROCHLORIDE
     Indication: Allergy prophylaxis
     Dosage: UNK
     Route: 065
  28. CHOLECALCIFEROL [Suspect]
     Active Substance: CHOLECALCIFEROL
     Indication: Product used for unknown indication
     Dosage: UNK
     Route: 065
  29. CLARITHROMYCIN [Suspect]
     Active Substance: CLARITHROMYCIN
     Indication: Product used for unknown indication
     Dosage: UNK
     Route: 065
  30. CLOTRIMAZOLE [Suspect]
     Active Substance: CLOTRIMAZOLE
     Indication: Product used for unknown indication
     Dosage: UNK
     Route: 065
  31. CUPRIC OXIDE [Suspect]
     Active Substance: CUPRIC OXIDE
     Indication: Product used for unknown indication
     Dosage: UNK
     Route: 065
  32. .ALPHA.-TOCOPHEROL, D- [Suspect]
     Active Substance: .ALPHA.-TOCOPHEROL, D-
     Indication: Product used for unknown indication
     Dosage: UNK
     Route: 065
  33. DESONIDE [Suspect]
     Active Substance: DESONIDE
     Indication: Product used for unknown indication
     Dosage: UNK
     Route: 065
  34. DIFENOXIN HYDROCHLORIDE [Suspect]
     Active Substance: DIFENOXIN HYDROCHLORIDE
     Indication: Product used for unknown indication
     Dosage: 1 UNK
     Route: 065
  35. DIPHENHYDRAMINE [Suspect]
     Active Substance: DIPHENHYDRAMINE
     Indication: Product used for unknown indication
     Dosage: UNK
     Route: 065
  36. ERTAPENEM SODIUM [Suspect]
     Active Substance: ERTAPENEM SODIUM
     Indication: Product used for unknown indication
     Dosage: UNK
     Route: 065
  37. FLOVENT [Suspect]
     Active Substance: FLUTICASONE PROPIONATE
     Indication: Product used for unknown indication
     Dosage: UNK
     Route: 065
  38. FLUOCINOLONE ACETONIDE\NEOMYCIN SULFATE\POLYMYXIN B SULFATE [Suspect]
     Active Substance: FLUOCINOLONE ACETONIDE\NEOMYCIN SULFATE\POLYMYXIN B SULFATE
     Indication: Product used for unknown indication
     Dosage: UNK
     Route: 065
  39. FLUTICASONE FUROATE [Suspect]
     Active Substance: FLUTICASONE FUROATE
     Indication: Product used for unknown indication
     Dosage: UNK
     Route: 065
  40. FRUCTOSE\GLYCERIN\SODIUM CHLORIDE [Suspect]
     Active Substance: FRUCTOSE\GLYCERIN\SODIUM CHLORIDE
     Indication: Product used for unknown indication
     Dosage: UNK
     Route: 048
  41. GLYCERIN [Suspect]
     Active Substance: GLYCERIN
     Indication: Product used for unknown indication
     Dosage: UNK
     Route: 065
  42. GRAMICIDIN [Suspect]
     Active Substance: GRAMICIDIN
     Indication: Product used for unknown indication
     Dosage: UNK
     Route: 065
  43. ICHTHAMMOL\ZINC OXIDE [Suspect]
     Active Substance: ICHTHAMMOL\ZINC OXIDE
     Indication: Product used for unknown indication
     Dosage: UNK
     Route: 065
  44. HUMIRA [Suspect]
     Active Substance: ADALIMUMAB
     Indication: Product used for unknown indication
     Dosage: UNK
     Route: 065
  45. HUMIRA [Suspect]
     Active Substance: ADALIMUMAB
     Indication: Crohn^s disease
     Dosage: UNK
     Route: 065
  46. HYDROMORPHONE HCL [Suspect]
     Active Substance: HYDROMORPHONE HYDROCHLORIDE
     Indication: Product used for unknown indication
     Dosage: UNK
     Route: 005
  47. HYDROCHLOROTHIAZIDE [Suspect]
     Active Substance: HYDROCHLOROTHIAZIDE
     Indication: Product used for unknown indication
     Dosage: UNK
     Route: 005
  48. KENALOG [Suspect]
     Active Substance: TRIAMCINOLONE ACETONIDE
     Indication: Product used for unknown indication
     Dosage: UNK
     Route: 014
  49. POLYETHYLENE GLYCOL\POTASSIUM CHLORIDE\SODIUM BICARBONATE [Suspect]
     Active Substance: POLYETHYLENE GLYCOL\POTASSIUM CHLORIDE\SODIUM BICARBONATE
     Indication: Product used for unknown indication
     Dosage: UNK
     Route: 065
  50. MAGNESIUM SULFATE [Suspect]
     Active Substance: MAGNESIUM SULFATE
     Indication: Product used for unknown indication
     Dosage: UNK
     Route: 065
  51. MORPHINE SULFATE [Suspect]
     Active Substance: MORPHINE SULFATE
     Indication: Product used for unknown indication
     Dosage: UNK
     Route: 065
  52. MUPIROCIN [Suspect]
     Active Substance: MUPIROCIN
     Indication: Product used for unknown indication
     Dosage: UNK
     Route: 061
  53. NADOLOL [Suspect]
     Active Substance: NADOLOL
     Indication: Product used for unknown indication
     Dosage: UNK
     Route: 065
  54. NEOMYCIN [Suspect]
     Active Substance: NEOMYCIN
     Indication: Product used for unknown indication
     Dosage: UNK
     Route: 065
  55. NICODERM CQ [Suspect]
     Active Substance: NICOTINE
     Indication: Product used for unknown indication
     Dosage: UNK
     Route: 065
  56. NICOTINE [Suspect]
     Active Substance: NICOTINE
     Indication: Product used for unknown indication
     Dosage: UNK
     Route: 065
  57. NICOTINE POLACRILEX [Suspect]
     Active Substance: NICOTINE
     Indication: Product used for unknown indication
     Dosage: UNK
     Route: 065
  58. PENTASA [Suspect]
     Active Substance: MESALAMINE
     Indication: Product used for unknown indication
     Dosage: UNK
     Route: 065
  59. POLYETHYLENE GLYCOL 4000 [Suspect]
     Active Substance: POLYETHYLENE GLYCOL 4000
     Indication: Product used for unknown indication
     Dosage: UNK
     Route: 005
  60. POLYMYXIN B SULFATE [Suspect]
     Active Substance: POLYMYXIN B SULFATE
     Indication: Product used for unknown indication
     Dosage: UNK
     Route: 065
  61. PREDNISONE [Suspect]
     Active Substance: PREDNISONE
     Indication: Product used for unknown indication
     Dosage: UNK
     Route: 065
  62. PULMICORT TURBUHALER [Suspect]
     Active Substance: BUDESONIDE
     Indication: Product used for unknown indication
     Dosage: UNK
  63. REFRESH TEARS [Suspect]
     Active Substance: CARBOXYMETHYLCELLULOSE SODIUM
     Indication: Product used for unknown indication
     Dosage: UNK
     Route: 047
  64. SODIUM CHLORIDE [Suspect]
     Active Substance: SODIUM CHLORIDE
     Indication: Product used for unknown indication
     Dosage: UNK
     Route: 045
  65. TRIAMCINOLONE ACETONIDE [Suspect]
     Active Substance: TRIAMCINOLONE ACETONIDE
     Indication: Product used for unknown indication
     Dosage: UNK
     Route: 065
  66. TRIAMCINOLONE ACETONIDE [Suspect]
     Active Substance: TRIAMCINOLONE ACETONIDE
     Indication: Product used for unknown indication
     Dosage: UNK
     Route: 014
  67. TRIMETHOPRIM [Suspect]
     Active Substance: TRIMETHOPRIM
     Indication: Product used for unknown indication
     Dosage: UNK
     Route: 065
  68. VITAMIN D3 [Suspect]
     Active Substance: CHOLECALCIFEROL
     Indication: Product used for unknown indication
     Dosage: UNK
     Route: 065
  69. XANTOFYL PALMITATE [Suspect]
     Active Substance: XANTOFYL PALMITATE
     Indication: Product used for unknown indication
     Dosage: UNK
     Route: 065
  70. ZEAXANTHIN [Suspect]
     Active Substance: ZEAXANTHIN
     Indication: Product used for unknown indication
     Dosage: UNK
     Route: 065
  71. ZINC OXIDE [Suspect]
     Active Substance: ZINC OXIDE
     Indication: Product used for unknown indication
     Dosage: UNK
     Route: 065
  72. CARBOXYMETHYLCELLULOSE SODIUM [Suspect]
     Active Substance: CARBOXYMETHYLCELLULOSE SODIUM
     Indication: Product used for unknown indication
     Dosage: UNK
     Route: 047
  73. VITAMIN D [Suspect]
     Active Substance: VITAMIN D NOS
     Indication: Product used for unknown indication
     Dosage: UNK
     Route: 065
  74. FLUTICASONE FUROATE [Suspect]
     Active Substance: FLUTICASONE FUROATE
     Indication: Product used for unknown indication
     Dosage: UNK
     Route: 065
  75. ENTOCORT [Suspect]
     Active Substance: BUDESONIDE
     Indication: Product used for unknown indication
     Dosage: UNK
     Route: 065
  76. ERGOCALCIFEROL [Suspect]
     Active Substance: ERGOCALCIFEROL
     Indication: Product used for unknown indication
     Dosage: UNK
     Route: 065
  77. AMBROXOL HYDROCHLORIDE [Suspect]
     Active Substance: AMBROXOL HYDROCHLORIDE
     Indication: Product used for unknown indication
     Dosage: UNK
     Route: 065
  78. LOPERAMIDE HYDROCHLORIDE [Suspect]
     Active Substance: LOPERAMIDE HYDROCHLORIDE
     Indication: Product used for unknown indication
     Dosage: UNK UNK, ONCE A DAY
     Route: 048
  79. CALCIUM GLUCONATE [Suspect]
     Active Substance: CALCIUM GLUCONATE
     Indication: Product used for unknown indication
     Dosage: UNK
     Route: 065
  80. HYDROMORPHONE HYDROCHLORIDE [Suspect]
     Active Substance: HYDROMORPHONE HYDROCHLORIDE
     Indication: Product used for unknown indication
     Dosage: UNK
     Route: 065
  81. GLYCERIN [Suspect]
     Active Substance: GLYCERIN
     Indication: Product used for unknown indication
     Dosage: UNK
     Route: 065
  82. GRAMICIDIN\NEOMYCIN SULFATE\POLYMYXIN B SULFATE [Suspect]
     Active Substance: GRAMICIDIN\NEOMYCIN SULFATE\POLYMYXIN B SULFATE
     Indication: Product used for unknown indication
     Dosage: UNK
     Route: 065
  83. POLYETHYLENE GLYCOL 3350\POTASSIUM CHLORIDE\SODIUM BICARBONATE\SODIUM [Suspect]
     Active Substance: POLYETHYLENE GLYCOL 3350\POTASSIUM CHLORIDE\SODIUM BICARBONATE\SODIUM CHLORIDE
     Indication: Product used for unknown indication
     Dosage: UNK
     Route: 065
  84. MORPHINE SULFATE [Suspect]
     Active Substance: MORPHINE SULFATE
     Indication: Product used for unknown indication
     Dosage: UNK
     Route: 065
  85. SODIUM CHLORIDE [Suspect]
     Active Substance: SODIUM CHLORIDE
     Indication: Product used for unknown indication
     Route: 006
  86. SODIUM BICARBONATE\SODIUM CHLORIDE [Suspect]
     Active Substance: SODIUM BICARBONATE\SODIUM CHLORIDE
     Indication: Product used for unknown indication
     Dosage: UNK
     Route: 006
  87. ZINC CHLORIDE [Suspect]
     Active Substance: ZINC CHLORIDE
     Indication: Product used for unknown indication
     Dosage: UNK
     Route: 065
  88. SODIUM STEARATE [Suspect]
     Active Substance: SODIUM STEARATE
     Indication: Product used for unknown indication
     Dosage: UNK
     Route: 065
  89. CALCIUM [Concomitant]
     Active Substance: CALCIUM
     Indication: Product used for unknown indication
     Dosage: UNK
     Route: 065
  90. VALSARTAN [Concomitant]
     Active Substance: VALSARTAN
     Indication: Product used for unknown indication
     Dosage: UNK
     Route: 067
  91. RETINOL [Concomitant]
     Active Substance: RETINOL
     Indication: Product used for unknown indication
     Dosage: UNK
     Route: 065

REACTIONS (2)
  - Macular degeneration [Unknown]
  - Drug ineffective [Unknown]
